FAERS Safety Report 16569351 (Version 2)
Quarter: 2019Q3

REPORT INFORMATION
  Report Type: Spontaneous
  Country: FR (occurrence: FR)
  Receive Date: 20190715
  Receipt Date: 20190716
  Transmission Date: 20191004
  Serious: Yes (Life-Threatening)
  Sender: FDA-Public Use
  Company Number: FR-ASTRAZENECA-2019SE99251

PATIENT
  Age: 69 Year
  Sex: Male
  Weight: 103 kg

DRUGS (5)
  1. XEROQUEL [Suspect]
     Active Substance: QUETIAPINE FUMARATE
     Indication: TOXICITY TO VARIOUS AGENTS
     Dosage: 1.8G UNKNOWN
     Route: 048
     Dates: start: 20190604
  2. DEPAKOTE [Suspect]
     Active Substance: DIVALPROEX SODIUM
     Indication: TOXICITY TO VARIOUS AGENTS
     Dosage: 3.0G UNKNOWN
     Route: 048
     Dates: start: 20190604
  3. SEROPLEX [Suspect]
     Active Substance: ESCITALOPRAM OXALATE
     Indication: TOXICITY TO VARIOUS AGENTS
     Dosage: 30.0MG UNKNOWN
     Route: 048
     Dates: start: 20190604
  4. SERESTA [Suspect]
     Active Substance: OXAZEPAM
     Indication: TOXICITY TO VARIOUS AGENTS
     Dosage: 100.0MG UNKNOWN
     Route: 048
     Dates: start: 20190604
  5. DEPAKOTE [Suspect]
     Active Substance: DIVALPROEX SODIUM
     Indication: TOXICITY TO VARIOUS AGENTS
     Dosage: 1.5G UNKNOWN
     Route: 048
     Dates: start: 20190604

REACTIONS (5)
  - Bradycardia [Recovered/Resolved]
  - Coma [Recovered/Resolved]
  - Toxicity to various agents [Recovered/Resolved]
  - Electrocardiogram QT prolonged [Recovered/Resolved]
  - Miosis [Recovered/Resolved]

NARRATIVE: CASE EVENT DATE: 20190604
